FAERS Safety Report 4790328-8 (Version None)
Quarter: 2005Q4

REPORT INFORMATION
  Report Type: 
  Country: None (occurrence: None)
  Receive Date: 20051005
  Receipt Date: 20051005
  Transmission Date: 20060501
  Serious: Yes (Hospitalization)
  Sender: FDA-Public Use
  Company Number: None

PATIENT
  Age: 70 Year
  Sex: Male

DRUGS (10)
  1. WARFARIN [Suspect]
     Indication: THROMBOSIS PROPHYLAXIS
     Dosage: 4MG PO QD
     Route: 048
  2. ASPIRIN [Concomitant]
  3. LASIX [Concomitant]
  4. CARVEDILOL [Concomitant]
  5. ACCUPRIL [Concomitant]
  6. METOLAZONE [Concomitant]
  7. ATORVASTATIN [Concomitant]
  8. ALLOPURINOL [Concomitant]
  9. DIGOXIN [Concomitant]
  10. REPAGLINIDE [Concomitant]

REACTIONS (4)
  - DYSPEPSIA [None]
  - FAECES DISCOLOURED [None]
  - GASTROINTESTINAL PAIN [None]
  - INTERNATIONAL NORMALISED RATIO INCREASED [None]
